FAERS Safety Report 26157567 (Version 1)
Quarter: 2025Q4

REPORT INFORMATION
  Report Type: Spontaneous
  Country: GB (occurrence: GB)
  Receive Date: 20251215
  Receipt Date: 20251215
  Transmission Date: 20260119
  Serious: Yes (Other)
  Sender: MYLAN
  Company Number: GB-BRISTOL-MYERS SQUIBB COMPANY-2025-164465

PATIENT
  Age: 40 Year
  Sex: Male

DRUGS (8)
  1. APIXABAN [Suspect]
     Active Substance: APIXABAN
     Indication: Product used for unknown indication
     Dosage: UNK
  2. APIXABAN [Suspect]
     Active Substance: APIXABAN
     Dosage: UNK
     Route: 065
  3. APIXABAN [Suspect]
     Active Substance: APIXABAN
     Dosage: UNK
     Route: 065
  4. APIXABAN [Suspect]
     Active Substance: APIXABAN
     Dosage: UNK
  5. LORLATINIB [Suspect]
     Active Substance: LORLATINIB
     Indication: Product used for unknown indication
     Dosage: UNK (2ND LINE)
  6. LORLATINIB [Suspect]
     Active Substance: LORLATINIB
     Dosage: UNK (2ND LINE)
     Route: 065
  7. LORLATINIB [Suspect]
     Active Substance: LORLATINIB
     Dosage: UNK (2ND LINE)
     Route: 065
  8. LORLATINIB [Suspect]
     Active Substance: LORLATINIB
     Dosage: UNK (2ND LINE)

REACTIONS (2)
  - Thrombosis [Unknown]
  - Oedema [Unknown]
